FAERS Safety Report 12712433 (Version 2)
Quarter: 2016Q4

REPORT INFORMATION
  Report Type: Spontaneous
  Country: US (occurrence: US)
  Receive Date: 20160902
  Receipt Date: 20161208
  Transmission Date: 20170207
  Serious: Yes (Other)
  Sender: FDA-Public Use
  Company Number: US-AMGEN-USASP2016116480

PATIENT

DRUGS (5)
  1. XGEVA [Suspect]
     Active Substance: DENOSUMAB
     Indication: PRODUCT USED FOR UNKNOWN INDICATION
     Dosage: UNK
     Route: 065
  2. TAXOL [Concomitant]
     Active Substance: PACLITAXEL
     Dosage: UNK UNK, QWK
  3. GEMZAR [Concomitant]
     Active Substance: GEMCITABINE HYDROCHLORIDE
     Dosage: UNK
  4. OXY [Concomitant]
     Active Substance: BENZOYL PEROXIDE
     Dosage: 10 MG, BID
  5. OXY [Concomitant]
     Active Substance: BENZOYL PEROXIDE
     Dosage: 100 MG, BID

REACTIONS (10)
  - Dyspnoea [Unknown]
  - Fracture [Unknown]
  - Metastases to liver [Unknown]
  - Metastases to lung [Unknown]
  - Avulsion fracture [Unknown]
  - Metastases to bone [Unknown]
  - Spinal compression fracture [Unknown]
  - Body height decreased [Unknown]
  - Pain [Unknown]
  - Rib fracture [Unknown]
